FAERS Safety Report 14536579 (Version 1)
Quarter: 2018Q1

REPORT INFORMATION
  Report Type: Spontaneous
  Country: US (occurrence: US)
  Receive Date: 20180215
  Receipt Date: 20180215
  Transmission Date: 20180509
  Serious: Yes (Hospitalization)
  Sender: FDA-Public Use
  Company Number: US-SA-2018SA041715

PATIENT
  Sex: Male

DRUGS (1)
  1. LANTUS [Suspect]
     Active Substance: INSULIN GLARGINE
     Route: 051
     Dates: start: 2013, end: 201610

REACTIONS (3)
  - Gangrene [Unknown]
  - Drug ineffective [Unknown]
  - Product use issue [Unknown]
